FAERS Safety Report 23385391 (Version 1)
Quarter: 2024Q1

REPORT INFORMATION
  Report Type: Spontaneous
  Country: US (occurrence: US)
  Receive Date: 20240110
  Receipt Date: 20240110
  Transmission Date: 20240410
  Serious: Yes (Other)
  Sender: FDA-Public Use
  Company Number: US-APOTEX-2024AP000782

PATIENT

DRUGS (5)
  1. PAROXETINE [Suspect]
     Active Substance: PAROXETINE
     Indication: Product used for unknown indication
     Dosage: UNK, 10MG, AND CUT THE OTHER 10MG INTO: 5MG, AND 2.5 MG
     Route: 065
     Dates: start: 20231230, end: 20231231
  2. PAROXETINE [Suspect]
     Active Substance: PAROXETINE
     Indication: Product used for unknown indication
     Dosage: 17.5 MILLIGRAM, OVER DECADES, 10MG, AND CUT THE OTHER 10MG INTO: 5MG, AND 2.5 MG
     Route: 065
  3. PAROXETINE [Suspect]
     Active Substance: PAROXETINE
     Dosage: 10 MILLIGRAM
     Route: 065
  4. PAROXETINE [Suspect]
     Active Substance: PAROXETINE
     Dosage: 12.5 MILLIGRAM
     Route: 065
  5. PAROXETINE [Suspect]
     Active Substance: PAROXETINE
     Dosage: 15 MILLIGRAM
     Route: 065

REACTIONS (7)
  - Hallucination [Unknown]
  - Discomfort [Unknown]
  - Dissociation [Unknown]
  - Palpitations [Unknown]
  - Wrong technique in product usage process [Unknown]
  - Diarrhoea [Unknown]
  - Tremor [Unknown]

NARRATIVE: CASE EVENT DATE: 20231230
